FAERS Safety Report 9129499 (Version 1)
Quarter: 2013Q1

REPORT INFORMATION
  Report Type: Spontaneous
  Country: IT (occurrence: IT)
  Receive Date: 20130228
  Receipt Date: 20130228
  Transmission Date: 20140127
  Serious: Yes (Hospitalization)
  Sender: FDA-Public Use
  Company Number: IT-GLAXOSMITHKLINE-B0870881A

PATIENT
  Sex: 0

DRUGS (2)
  1. VOTRIENT [Suspect]
     Indication: RENAL CANCER
     Route: 065
  2. ANTICOAGULANT [Suspect]
     Indication: COAGULOPATHY
     Route: 065

REACTIONS (1)
  - Muscle necrosis [Not Recovered/Not Resolved]
